FAERS Safety Report 8141962-9 (Version None)
Quarter: 2012Q1

REPORT INFORMATION
  Report Type: 
  Country: None (occurrence: None)
  Receive Date: 20120216
  Receipt Date: 20120206
  Transmission Date: 20120608
  Serious: Yes (Hospitalization)
  Sender: FDA-Public Use
  Company Number: TW-GLAXOSMITHKLINE-B0781942A

PATIENT
  Age: 18 Year
  Sex: Female

DRUGS (1)
  1. BUPROPION HCL [Suspect]
     Dosage: 2.85G PER DAY

REACTIONS (7)
  - GRAND MAL CONVULSION [None]
  - VENTRICULAR TACHYCARDIA [None]
  - DISORIENTATION [None]
  - BRADYCARDIA [None]
  - ELECTROCARDIOGRAM QT PROLONGED [None]
  - OVERDOSE [None]
  - METABOLIC ACIDOSIS [None]
